FAERS Safety Report 8455790-8 (Version None)
Quarter: 2012Q2

REPORT INFORMATION
  Report Type: 
  Country: None (occurrence: None)
  Receive Date: 20120621
  Receipt Date: 20120613
  Transmission Date: 20120825
  Serious: Yes (Death)
  Sender: FDA-Public Use
  Company Number: VE-PFIZER INC-2012134950

PATIENT
  Age: 66 Year
  Sex: Male

DRUGS (2)
  1. LIPITOR [Suspect]
     Indication: HYPERCHOLESTEROLAEMIA
     Dosage: UNK
     Route: 045
     Dates: start: 20110801
  2. COZAAR [Concomitant]
     Dosage: 50 MG, 1X/DAY
     Route: 048

REACTIONS (1)
  - AORTIC SURGERY [None]
